FAERS Safety Report 18643068 (Version 4)
Quarter: 2021Q2

REPORT INFORMATION
  Report Type: Spontaneous
  Country: US (occurrence: US)
  Receive Date: 20201221
  Receipt Date: 20210427
  Transmission Date: 20210717
  Serious: Yes (Hospitalization, Other)
  Sender: FDA-Public Use
  Company Number: US-PFIZER INC-2020497058

PATIENT
  Age: 86 Year
  Sex: Female

DRUGS (1)
  1. IBRANCE [Suspect]
     Active Substance: PALBOCICLIB
     Indication: BREAST CANCER FEMALE
     Dosage: 100 MG

REACTIONS (6)
  - Emotional distress [Unknown]
  - COVID-19 [Unknown]
  - Colitis [Unknown]
  - Neoplasm progression [Unknown]
  - Hypoacusis [Unknown]
  - Urinary tract infection [Unknown]
